FAERS Safety Report 7681795-0 (Version None)
Quarter: 2011Q3

REPORT INFORMATION
  Report Type: 
  Country: None (occurrence: None)
  Receive Date: 20110812
  Receipt Date: 20110803
  Transmission Date: 20111222
  Serious: Yes (Congenital Anomaly)
  Sender: FDA-Public Use
  Company Number: FR-ASTRAZENECA-2011SE47035

PATIENT
  Age: 0 Day
  Sex: Male
  Weight: 3.1 kg

DRUGS (7)
  1. COZAAR [Suspect]
     Route: 064
     Dates: start: 20100727, end: 20101216
  2. CYMBALTA [Suspect]
     Route: 064
     Dates: start: 20101216, end: 20110328
  3. METFORMIN HCL [Suspect]
     Route: 064
     Dates: start: 20100727, end: 20101216
  4. CYMBALTA [Suspect]
     Route: 064
     Dates: start: 20100727, end: 20101216
  5. CRESTOR [Suspect]
     Route: 064
     Dates: start: 20100727, end: 20101216
  6. SITAGLIPTIN PHOSPHATE [Suspect]
     Route: 064
     Dates: start: 20100727, end: 20101216
  7. LEVOTHYROXINE SODIUM [Concomitant]
     Dosage: ALTERNATING 150/175 UG
     Route: 064

REACTIONS (2)
  - POLYDACTYLY [None]
  - ANOMALY OF EXTERNAL EAR CONGENITAL [None]
